FAERS Safety Report 5780544-0 (Version None)
Quarter: 2008Q2

REPORT INFORMATION
  Report Type: 
  Country: None (occurrence: None)
  Receive Date: 20080620
  Receipt Date: 20080613
  Transmission Date: 20081010
  Serious: Yes (Hospitalization)
  Sender: FDA-Public Use
  Company Number: JP-SANOFI-SYNTHELABO-F01200701666

PATIENT
  Sex: Female

DRUGS (11)
  1. DECADRON [Concomitant]
     Dosage: UNK
     Dates: start: 20070810, end: 20070824
  2. OXYCONTIN [Concomitant]
     Dosage: UNK
     Dates: start: 20070518
  3. RABEPRAZOLE SODIUM [Suspect]
     Dosage: UNK
     Dates: start: 20070511
  4. LOXONIN [Concomitant]
     Dosage: UNK
  5. PROMAC [Concomitant]
     Dosage: UNK
     Dates: start: 20070817
  6. KYTRIL [Concomitant]
     Dosage: UNK
     Dates: start: 20070810, end: 20080520
  7. RADIOTHERAPY [Suspect]
     Dosage: UNK
     Dates: start: 20070907, end: 20070921
  8. AVASTIN [Suspect]
     Route: 042
     Dates: start: 20070824, end: 20070824
  9. LEUCOVORIN CALCIUM [Suspect]
     Route: 042
     Dates: start: 20070824, end: 20070825
  10. FLUOROURACIL [Suspect]
     Route: 042
     Dates: start: 20070824, end: 20070825
  11. ELPLAT [Suspect]
     Indication: COLON CANCER RECURRENT
     Route: 042
     Dates: start: 20070824, end: 20070824

REACTIONS (3)
  - MYOCARDIAL INFARCTION [None]
  - NEUTROPHIL COUNT DECREASED [None]
  - STOMATITIS [None]
